FAERS Safety Report 16635593 (Version 2)
Quarter: 2019Q3

REPORT INFORMATION
  Report Type: Spontaneous
  Country: CN (occurrence: CN)
  Receive Date: 20190726
  Receipt Date: 20190729
  Transmission Date: 20191004
  Serious: Yes (Death, Other)
  Sender: FDA-Public Use
  Company Number: CN-ASTRAZENECA-2019SF06404

PATIENT
  Age: 24788 Day
  Sex: Female
  Weight: 55 kg

DRUGS (1)
  1. LYNPARZA [Suspect]
     Active Substance: OLAPARIB
     Indication: OVARIAN EPITHELIAL CANCER
     Dosage: 300.0MG UNKNOWN
     Route: 048
     Dates: start: 201901, end: 201901

REACTIONS (5)
  - Ascites [Unknown]
  - Ileus [Unknown]
  - White blood cell disorder [Unknown]
  - Malignant neoplasm progression [Fatal]
  - Anaemia [Unknown]

NARRATIVE: CASE EVENT DATE: 20190312
